FAERS Safety Report 14422580 (Version 1)
Quarter: 2018Q1

REPORT INFORMATION
  Report Type: Spontaneous
  Country: US (occurrence: US)
  Receive Date: 20180123
  Receipt Date: 20180123
  Transmission Date: 20180509
  Serious: No
  Sender: FDA-Public Use
  Company Number: US-INSYS THERAPEUTICS, INC-INS201710-000636

PATIENT
  Sex: Male
  Weight: 60.8 kg

DRUGS (11)
  1. VASCEPA [Concomitant]
     Active Substance: ICOSAPENT ETHYL
  2. SYNDROS [Suspect]
     Active Substance: DRONABINOL
     Indication: PRODUCT USED FOR UNKNOWN INDICATION
     Route: 048
  3. LOSARTAN. [Concomitant]
     Active Substance: LOSARTAN
  4. PEPCID [Concomitant]
     Active Substance: FAMOTIDINE
  5. FOLIC ACID. [Concomitant]
     Active Substance: FOLIC ACID
  6. TRICOR [Concomitant]
     Active Substance: FENOFIBRATE
  7. ACTOS [Concomitant]
     Active Substance: PIOGLITAZONE HYDROCHLORIDE
  8. VITAMIN D3 [Concomitant]
     Active Substance: CHOLECALCIFEROL
  9. LIVALO [Concomitant]
     Active Substance: PITAVASTATIN CALCIUM
  10. NEURONTIN [Concomitant]
     Active Substance: GABAPENTIN
  11. GENVOYA [Concomitant]
     Active Substance: COBICISTAT\ELVITEGRAVIR\EMTRICITABINE\TENOFOVIR ALAFENAMIDE FUMARATE
     Route: 048

REACTIONS (1)
  - Somnolence [Recovered/Resolved]
